FAERS Safety Report 12820949 (Version 3)
Quarter: 2017Q3

REPORT INFORMATION
  Report Type: Spontaneous
  Country: JP (occurrence: JP)
  Receive Date: 20161007
  Receipt Date: 20170823
  Transmission Date: 20171127
  Serious: Yes (Hospitalization, Other)
  Sender: FDA-Public Use
  Company Number: JP-AMGEN-JPNSP2016138110

PATIENT
  Age: 69 Year
  Sex: Male

DRUGS (3)
  1. G-LASTA [Suspect]
     Active Substance: PEGFILGRASTIM
     Indication: PRODUCT USED FOR UNKNOWN INDICATION
     Dosage: UNK
     Route: 058
  2. NAVELBINE [Suspect]
     Active Substance: VINORELBINE TARTRATE
     Indication: PANCREATIC CARCINOMA
     Dosage: UNK
     Route: 041
  3. GEMCITABINE [Suspect]
     Active Substance: GEMCITABINE\GEMCITABINE HYDROCHLORIDE
     Indication: PANCREATIC CARCINOMA
     Dosage: UNK
     Route: 041

REACTIONS (2)
  - Febrile neutropenia [Recovered/Resolved]
  - Pneumonia pseudomonal [Recovered/Resolved]
